FAERS Safety Report 13528255 (Version 1)
Quarter: 2017Q2

REPORT INFORMATION
  Report Type: Spontaneous
  Country: US (occurrence: US)
  Receive Date: 20170509
  Receipt Date: 20170509
  Transmission Date: 20170830
  Serious: Yes (Hospitalization)
  Sender: FDA-Public Use
  Company Number: US-CELGENEUS-USA-20170502004

PATIENT
  Sex: Female
  Weight: 45.4 kg

DRUGS (2)
  1. THALOMID [Suspect]
     Active Substance: THALIDOMIDE
     Indication: BONE MARROW TRANSPLANT
     Dosage: 100 MILLIGRAM
     Route: 048
     Dates: start: 201011
  2. THALOMID [Suspect]
     Active Substance: THALIDOMIDE
     Dosage: 150 MILLIGRAM
     Route: 048
     Dates: start: 201203

REACTIONS (1)
  - Dehydration [Recovered/Resolved]
